FAERS Safety Report 5515039-2 (Version None)
Quarter: 2007Q4

REPORT INFORMATION
  Report Type: 
  Country: None (occurrence: None)
  Receive Date: 20071113
  Receipt Date: 20061127
  Transmission Date: 20080405
  Serious: No
  Sender: FDA-Public Use
  Company Number: A0628704A

PATIENT
  Age: 53 Year
  Sex: Female

DRUGS (12)
  1. COREG [Suspect]
     Indication: LEFT VENTRICULAR DYSFUNCTION
     Dosage: 12.5MG TWICE PER DAY
     Route: 048
     Dates: start: 20041120
  2. VERELAN PM [Concomitant]
  3. COZAAR [Concomitant]
  4. PREDNISONE [Concomitant]
  5. BACLOFEN [Concomitant]
  6. GABAPENTIN [Concomitant]
  7. CYMBALTA [Concomitant]
  8. MORPHINE SULFATE [Concomitant]
  9. KADIAN [Concomitant]
  10. COLACE [Concomitant]
  11. TYLENOL [Concomitant]
  12. CENTRUM MULTI-VITAMIN [Concomitant]

REACTIONS (2)
  - EXPIRED DRUG ADMINISTERED [None]
  - HEADACHE [None]
